FAERS Safety Report 18747487 (Version 3)
Quarter: 2021Q1

REPORT INFORMATION
  Report Type: Spontaneous
  Country: PT (occurrence: PT)
  Receive Date: 20210115
  Receipt Date: 20210205
  Transmission Date: 20210419
  Serious: Yes (Hospitalization, Other)
  Sender: FDA-Public Use
  Company Number: NVSC2021PT008203

PATIENT
  Age: 88 Year
  Sex: Female

DRUGS (17)
  1. PARACETAMOL [Suspect]
     Active Substance: ACETAMINOPHEN
     Indication: PAIN
  2. NAPROXEN. [Suspect]
     Active Substance: NAPROXEN
     Indication: PAIN IN EXTREMITY
     Dosage: UNK
     Route: 065
     Dates: start: 201901
  3. VITAMIN D [Concomitant]
     Active Substance: VITAMIN D NOS
     Indication: PRODUCT USED FOR UNKNOWN INDICATION
     Dosage: UNK
     Route: 065
  4. PREDNISOLONE. [Concomitant]
     Active Substance: PREDNISOLONE
     Indication: POLYMYALGIA RHEUMATICA
     Dosage: 15 MG, QD
     Route: 065
     Dates: start: 201902
  5. ETORICOXIB. [Suspect]
     Active Substance: ETORICOXIB
     Indication: PAIN
     Dosage: UNK
     Route: 065
     Dates: start: 201902
  6. GLICLAZIDE [Concomitant]
     Active Substance: GLICLAZIDE
     Indication: PRODUCT USED FOR UNKNOWN INDICATION
     Dosage: UNK
     Route: 065
  7. TAPENTADOL [Concomitant]
     Active Substance: TAPENTADOL
     Indication: SYMPTOMATIC TREATMENT
     Dosage: UNK
     Route: 065
     Dates: start: 2019
  8. NAPROXEN. [Suspect]
     Active Substance: NAPROXEN
     Indication: PAIN
  9. VILDAGLIPTIN [Concomitant]
     Active Substance: VILDAGLIPTIN
     Indication: PRODUCT USED FOR UNKNOWN INDICATION
     Dosage: UNK
     Route: 065
  10. LISINOPRIL. [Concomitant]
     Active Substance: LISINOPRIL
     Indication: PRODUCT USED FOR UNKNOWN INDICATION
     Dosage: UNK
     Route: 065
  11. METFORMIN HYDROCHLORIDE. [Concomitant]
     Active Substance: METFORMIN HYDROCHLORIDE
     Indication: PRODUCT USED FOR UNKNOWN INDICATION
     Dosage: UNK
     Route: 065
  12. PREDNISOLONE. [Concomitant]
     Active Substance: PREDNISOLONE
     Dosage: 12.5 MG, QD
     Route: 065
  13. CALCIUM [Concomitant]
     Active Substance: CALCIUM
     Indication: PRODUCT USED FOR UNKNOWN INDICATION
     Dosage: UNK
     Route: 065
  14. RISEDRONATE SODIUM. [Concomitant]
     Active Substance: RISEDRONATE SODIUM
     Indication: PRODUCT USED FOR UNKNOWN INDICATION
     Dosage: UNK
     Route: 065
  15. IRON [Concomitant]
     Active Substance: IRON
     Indication: PRODUCT USED FOR UNKNOWN INDICATION
     Dosage: UNK
     Route: 065
  16. PARACETAMOL [Suspect]
     Active Substance: ACETAMINOPHEN
     Indication: PAIN IN EXTREMITY
     Dosage: UNK
     Route: 065
     Dates: start: 201901
  17. PRAVASTATIN. [Concomitant]
     Active Substance: PRAVASTATIN
     Indication: PRODUCT USED FOR UNKNOWN INDICATION
     Dosage: UNK
     Route: 065

REACTIONS (1)
  - Acute kidney injury [Unknown]

NARRATIVE: CASE EVENT DATE: 201902
